FAERS Safety Report 12194044 (Version 1)
Quarter: 2016Q1

REPORT INFORMATION
  Report Type: Spontaneous
  Country: GB (occurrence: GB)
  Receive Date: 20160321
  Receipt Date: 20160321
  Transmission Date: 20160526
  Serious: Yes (Other)
  Sender: FDA-Public Use
  Company Number: GB-ACCORD-038929

PATIENT
  Age: 47 Year
  Sex: Male

DRUGS (8)
  1. PREDNISOLONE. [Suspect]
     Active Substance: PREDNISOLONE
     Indication: DERMATITIS ATOPIC
     Dosage: PREVIOUSLY RECEIVED 20-25 MG DAILY THEN DOSE REDUCED TO 5 MG DAILY AND THEN INCREASED TO 25 MG DAILY
  2. AZATHIOPRINE. [Suspect]
     Active Substance: AZATHIOPRINE
     Indication: PRODUCT USED FOR UNKNOWN INDICATION
  3. MYCOPHENOLIC ACID. [Concomitant]
     Active Substance: MYCOPHENOLIC ACID
     Indication: DERMATITIS ATOPIC
  4. CICLOSPORIN [Suspect]
     Active Substance: CYCLOSPORINE
     Indication: DERMATITIS ATOPIC
  5. DIMETHYL FUMARATE/FUMARATE DISODIUM/FUMARIC ACID [Concomitant]
     Indication: DERMATITIS ATOPIC
  6. RITUXIMAB [Concomitant]
     Active Substance: RITUXIMAB
     Indication: DERMATITIS ATOPIC
     Dosage: GIVEN 2 WEEKS APART
     Dates: start: 201305
  7. METHOTREXATE [Suspect]
     Active Substance: METHOTREXATE
     Indication: PRODUCT USED FOR UNKNOWN INDICATION
  8. TACROLIMUS. [Concomitant]
     Active Substance: TACROLIMUS
     Indication: DERMATITIS ATOPIC

REACTIONS (3)
  - Drug ineffective [Unknown]
  - Skin infection [Unknown]
  - Cushingoid [Unknown]
